FAERS Safety Report 13892462 (Version 1)
Quarter: 2017Q3

REPORT INFORMATION
  Report Type: Spontaneous
  Country: IN (occurrence: IN)
  Receive Date: 20170822
  Receipt Date: 20170822
  Transmission Date: 20171127
  Serious: Yes (Hospitalization)
  Sender: FDA-Public Use
  Company Number: PHHY2017IN122690

PATIENT

DRUGS (1)
  1. CIDMUS [Suspect]
     Active Substance: SACUBITRIL\VALSARTAN
     Indication: CARDIAC FAILURE
     Dosage: UNK
     Route: 065

REACTIONS (3)
  - Pulmonary oedema [Recovered/Resolved]
  - Eosinophilia [Unknown]
  - Drug hypersensitivity [Unknown]
